FAERS Safety Report 7506705-8 (Version None)
Quarter: 2011Q2

REPORT INFORMATION
  Report Type: 
  Country: None (occurrence: None)
  Receive Date: 20110526
  Receipt Date: 20101220
  Transmission Date: 20111010
  Serious: Yes (Life-Threatening, Hospitalization, Disabling, Other)
  Sender: FDA-Public Use
  Company Number: US-BAYER-2010-006497

PATIENT
  Age: 62 Year
  Sex: Male
  Weight: 230 kg

DRUGS (1)
  1. AVELOX [Suspect]
     Indication: SINUSITIS
     Dosage: DAILY DOSE 400 MG
     Route: 048
     Dates: start: 20101105, end: 20101105

REACTIONS (10)
  - SHOCK [None]
  - VOMITING [None]
  - ABDOMINAL PAIN [None]
  - FALL [None]
  - NAUSEA [None]
  - ANAPHYLACTIC SHOCK [None]
  - HYPERHIDROSIS [None]
  - FIBULA FRACTURE [None]
  - DIZZINESS [None]
  - VISUAL IMPAIRMENT [None]
